FAERS Safety Report 21755503 (Version 2)
Quarter: 2023Q1

REPORT INFORMATION
  Report Type: Spontaneous
  Country: MX (occurrence: MX)
  Receive Date: 20221220
  Receipt Date: 20230104
  Transmission Date: 20230418
  Serious: Yes (Death, Hospitalization, Other)
  Sender: FDA-Public Use
  Company Number: MX-BAYER-2022P030360

PATIENT
  Age: 4 Year
  Sex: Male

DRUGS (9)
  1. LAROTRECTINIB [Suspect]
     Active Substance: LAROTRECTINIB
     Indication: Glioneuronal tumour
     Dosage: 100 MG, BID
     Route: 048
     Dates: start: 20211021, end: 20221124
  2. CISPLATIN [Concomitant]
     Active Substance: CISPLATIN
  3. DEXAMETHASONE [Concomitant]
     Active Substance: DEXAMETHASONE
  4. CISAPRIDE [Concomitant]
     Active Substance: CISAPRIDE
  5. OMEPRAZOLE [Concomitant]
     Active Substance: OMEPRAZOLE
  6. LEVETIRACETAM [Concomitant]
     Active Substance: LEVETIRACETAM
  7. TRAMADOL [Concomitant]
     Active Substance: TRAMADOL
  8. ACETAMINOPHEN [Concomitant]
     Active Substance: ACETAMINOPHEN
  9. BEVACIZUMAB [Concomitant]
     Active Substance: BEVACIZUMAB

REACTIONS (10)
  - Glioneuronal tumour [Fatal]
  - Device malfunction [None]
  - Vomiting [None]
  - Somnolence [None]
  - Hydrocephalus [None]
  - Ascites [None]
  - Enterobacter infection [Recovering/Resolving]
  - Intestinal perforation [None]
  - Sepsis [None]
  - Multiple organ dysfunction syndrome [None]

NARRATIVE: CASE EVENT DATE: 20221124
